FAERS Safety Report 8951358 (Version 2)
Quarter: 2012Q4

REPORT INFORMATION
  Report Type: 
  Country: JP (occurrence: JP)
  Receive Date: 20121207
  Receipt Date: 20121228
  Transmission Date: 20130627
  Serious: Yes (Hospitalization)
  Sender: FDA-Public Use
  Company Number: JP-ELI_LILLY_AND_COMPANY-JP201211007947

PATIENT
  Age: 44 Year
  Sex: Female

DRUGS (9)
  1. ZYPREXA [Suspect]
     Indication: SCHIZOPHRENIA
     Dosage: 5 mg, qd
     Route: 048
     Dates: start: 20120220, end: 20120304
  2. ZYPREXA [Suspect]
     Dosage: 2.5 mg, qd
     Route: 048
     Dates: start: 20120305, end: 20121122
  3. RISPERDAL [Concomitant]
     Dosage: 2 mg, UNK
     Route: 048
     Dates: start: 20110706, end: 20121206
  4. MAGMITT [Concomitant]
     Dosage: 660 mg, tid
     Route: 048
     Dates: start: 20120305, end: 20121206
  5. DORAL [Concomitant]
     Dosage: 15 mg, UNK
     Route: 048
     Dates: start: 20110323, end: 20121206
  6. ROHYPNOL [Concomitant]
     Dosage: 1 mg, UNK
     Route: 048
     Dates: start: 20110316, end: 20121206
  7. PURSENNID [Concomitant]
     Dosage: 24 mg, UNK
     Route: 048
     Dates: start: 20120305, end: 20121206
  8. BOFUTSUSHOSAN [Concomitant]
     Dosage: 7.5 g, UNK
     Route: 048
     Dates: start: 20110328, end: 20121206
  9. TOKISHAKUYAKUSAN [Concomitant]
     Dosage: 7.5 g, UNK
     Route: 048
     Dates: start: 20110323, end: 20121206

REACTIONS (2)
  - Leukopenia [Recovered/Resolved]
  - Somnolence [Unknown]
